FAERS Safety Report 24681564 (Version 1)
Quarter: 2024Q4

REPORT INFORMATION
  Report Type: Spontaneous
  Country: BE (occurrence: BE)
  Receive Date: 20241130
  Receipt Date: 20241130
  Transmission Date: 20250115
  Serious: Yes (Hospitalization)
  Sender: JOHNSON AND JOHNSON
  Company Number: None

PATIENT
  Sex: Male

DRUGS (1)
  1. RISPERDAL [Suspect]
     Active Substance: RISPERIDONE
     Dosage: 10.00 MG, ONCE
     Route: 048

REACTIONS (2)
  - Malaise [Not Recovered/Not Resolved]
  - Intentional self-injury [Not Recovered/Not Resolved]
